FAERS Safety Report 13338777 (Version 1)
Quarter: 2017Q1

REPORT INFORMATION
  Report Type: Spontaneous
  Country: BR (occurrence: BR)
  Receive Date: 20170315
  Receipt Date: 20170315
  Transmission Date: 20170428
  Serious: Yes (Death, Other)
  Sender: FDA-Public Use
  Company Number: BR-JNJFOC-20170314883

PATIENT

DRUGS (2)
  1. FENTANYL. [Suspect]
     Active Substance: FENTANYL
     Indication: INTENTIONAL PRODUCT MISUSE
     Route: 065
  2. FENTANYL. [Suspect]
     Active Substance: FENTANYL
     Indication: PAIN
     Route: 065

REACTIONS (11)
  - Respiratory rate decreased [Unknown]
  - Infarction [Unknown]
  - Death [Fatal]
  - Cerebrovascular accident [Unknown]
  - Intentional product misuse [Unknown]
  - Somnolence [Unknown]
  - Haemorrhage [Unknown]
  - Dependence [Unknown]
  - Ulcer [Unknown]
  - Nausea [Unknown]
  - Constipation [Unknown]
